FAERS Safety Report 9735186 (Version 1)
Quarter: 2013Q4

REPORT INFORMATION
  Report Type: Spontaneous
  Country: US (occurrence: None)
  Receive Date: 20131205
  Receipt Date: 20131205
  Transmission Date: 20140711
  Serious: Yes (Other)
  Sender: FDA-Public Use
  Company Number: None

PATIENT
  Age: 15 Year
  Sex: Male
  Weight: 58.97 kg

DRUGS (1)
  1. ALBUTEROL SULFATE [Suspect]
     Indication: ASTHMA
     Dosage: 1 VAIL/ THREE TIMES DAILY/ INHALATION
     Route: 045
     Dates: start: 20131014, end: 20131101

REACTIONS (8)
  - Nervousness [None]
  - Disturbance in attention [None]
  - Tremor [None]
  - Palpitations [None]
  - Wheezing [None]
  - Respiratory rate increased [None]
  - Condition aggravated [None]
  - Product quality issue [None]
